FAERS Safety Report 21907610 (Version 1)
Quarter: 2023Q1

REPORT INFORMATION
  Report Type: Spontaneous
  Country: JP (occurrence: JP)
  Receive Date: 20230125
  Receipt Date: 20230125
  Transmission Date: 20230417
  Serious: Yes (Other)
  Sender: FDA-Public Use
  Company Number: JP-ASTELLAS-2023JP000539

PATIENT
  Age: 79 Year
  Sex: Female

DRUGS (3)
  1. MICAFUNGIN [Suspect]
     Active Substance: MICAFUNGIN
     Indication: Pneumonia
     Dosage: UNK UNK, UNKNOWN FREQ.
     Route: 065
  2. DORIPENEM MONOHYDRATE [Suspect]
     Active Substance: DORIPENEM MONOHYDRATE
     Indication: Pneumonia
     Dosage: UNK UNK, UNKNOWN FREQ.
     Route: 065
  3. VANCOMYCIN HYDROCHLORIDE [Suspect]
     Active Substance: VANCOMYCIN HYDROCHLORIDE
     Indication: Pneumonia
     Dosage: UNK UNK, UNKNOWN FREQ.
     Route: 065

REACTIONS (2)
  - Linear IgA disease [Recovering/Resolving]
  - Off label use [Unknown]
